FAERS Safety Report 4634415-3 (Version None)
Quarter: 2005Q2

REPORT INFORMATION
  Report Type: 
  Country: None (occurrence: None)
  Receive Date: 20050411
  Receipt Date: 20050330
  Transmission Date: 20051028
  Serious: Yes (Life-Threatening, Hospitalization, Other)
  Sender: FDA-Public Use
  Company Number: HQWYE550230MAR05

PATIENT
  Age: 80 Year
  Sex: Male

DRUGS (4)
  1. CORDARONE [Suspect]
     Indication: ATRIAL FIBRILLATION
     Dosage: 400 MG 5X PER 1 WK
     Route: 048
     Dates: end: 20030723
  2. CORDARONE [Suspect]
     Indication: ATRIAL FLUTTER
     Dosage: 400 MG 5X PER 1 WK
     Route: 048
     Dates: end: 20030723
  3. FUROSEMIDE [Suspect]
     Dosage: 40 MG 1X PER 1 DAY
     Route: 048
     Dates: end: 20030723
  4. DIGOXIN [Concomitant]

REACTIONS (6)
  - CARDIOACTIVE DRUG LEVEL INCREASED [None]
  - DUST INHALATION PNEUMOPATHY [None]
  - LOSS OF CONSCIOUSNESS [None]
  - RESPIRATORY ARREST [None]
  - SYNCOPE [None]
  - TORSADE DE POINTES [None]
